FAERS Safety Report 12650988 (Version 1)
Quarter: 2016Q3

REPORT INFORMATION
  Report Type: Spontaneous
  Country: US (occurrence: US)
  Receive Date: 20160815
  Receipt Date: 20160815
  Transmission Date: 20161109
  Serious: No
  Sender: FDA-Public Use
  Company Number: US-JAZZ-2016-US-005060

PATIENT
  Age: 30 Year
  Sex: Female

DRUGS (28)
  1. MAGNESIUM OXIDE. [Concomitant]
     Active Substance: MAGNESIUM OXIDE
  2. LEVETIRACETAM. [Concomitant]
     Active Substance: LEVETIRACETAM
  3. COENZYME Q10 [Concomitant]
     Active Substance: UBIDECARENONE
  4. VITAMIN D [Concomitant]
     Active Substance: CHOLECALCIFEROL
  5. XANAX [Concomitant]
     Active Substance: ALPRAZOLAM
  6. XYREM [Suspect]
     Active Substance: SODIUM OXYBATE
     Indication: CATAPLEXY
     Dosage: DOSE ADJUSTMENTS
     Route: 048
     Dates: start: 201602, end: 201603
  7. OXYCODONE HYDROCHLORIDE. [Concomitant]
     Active Substance: OXYCODONE HYDROCHLORIDE
  8. ASTELIN [Concomitant]
     Active Substance: AZELASTINE HYDROCHLORIDE
  9. CLARITIN [Concomitant]
     Active Substance: LORATADINE
  10. TRIAMCINOLONE [Concomitant]
     Active Substance: TRIAMCINOLONE
  11. GRALISE [Concomitant]
     Active Substance: GABAPENTIN
  12. OXYCONTIN [Concomitant]
     Active Substance: OXYCODONE HYDROCHLORIDE
  13. LACTULOSE. [Concomitant]
     Active Substance: LACTULOSE
  14. XYZAL [Concomitant]
     Active Substance: LEVOCETIRIZINE DIHYDROCHLORIDE
  15. ARTIFICIAL TEARS [Concomitant]
     Active Substance: GLYCERIN\HYPROMELLOSES\POLYETHYLENE GLYCOL 400
  16. NASONEX [Concomitant]
     Active Substance: MOMETASONE FUROATE
  17. ADDERALL [Concomitant]
     Active Substance: AMPHETAMINE ASPARTATE\AMPHETAMINE SULFATE\DEXTROAMPHETAMINE SACCHARATE\DEXTROAMPHETAMINE SULFATE
  18. CLOBETASOL [Concomitant]
     Active Substance: CLOBETASOL
  19. NEURONTIN [Concomitant]
     Active Substance: GABAPENTIN
  20. TROPICAMIDE. [Concomitant]
     Active Substance: TROPICAMIDE
  21. VITAMIN B2 [Concomitant]
     Active Substance: RIBOFLAVIN
  22. XYREM [Suspect]
     Active Substance: SODIUM OXYBATE
     Indication: NARCOLEPSY
     Dosage: 2.25 G, BID
     Route: 048
     Dates: start: 201602, end: 201602
  23. XYREM [Suspect]
     Active Substance: SODIUM OXYBATE
     Dosage: 4.5 G, BID
     Route: 048
     Dates: start: 201603
  24. BIOTIN [Concomitant]
     Active Substance: BIOTIN
  25. CLINDAMYCIN [Concomitant]
     Active Substance: CLINDAMYCIN\CLINDAMYCIN PHOSPHATE
  26. LIDOCAINE. [Concomitant]
     Active Substance: LIDOCAINE
  27. NITRO-BID [Concomitant]
     Active Substance: NITROGLYCERIN
  28. SALINE [Concomitant]
     Active Substance: SODIUM CHLORIDE

REACTIONS (3)
  - Drug effect increased [Not Recovered/Not Resolved]
  - Feeling abnormal [Not Recovered/Not Resolved]
  - Fatigue [Unknown]

NARRATIVE: CASE EVENT DATE: 201603
